FAERS Safety Report 18641675 (Version 1)
Quarter: 2020Q4

REPORT INFORMATION
  Report Type: Spontaneous
  Country: US (occurrence: US)
  Receive Date: 20201221
  Receipt Date: 20201221
  Transmission Date: 20210114
  Serious: No
  Sender: FDA-Public Use
  Company Number: US-CELLTRION INC.-2020US026762

PATIENT

DRUGS (9)
  1. RITUXIMAB (UNKNOWN) [Suspect]
     Active Substance: RITUXIMAB
     Dosage: FOUR DOSES OF WEEKLY RITUXIMAB
     Route: 042
  2. METHOTREXATE. [Suspect]
     Active Substance: METHOTREXATE
     Indication: GLYCOGEN STORAGE DISEASE TYPE II
     Dosage: THREE CYCLES OF LOW-DOSE METHOTREXATE (0.4 MG/KG; THREE DOSES PER CYCLE WITH FIRST THREE ERT INFUSIO
     Route: 065
  3. METHOTREXATE. [Suspect]
     Active Substance: METHOTREXATE
     Dosage: THREE CYCLES OF LOW-DOSE METHOTREXATE (0.4 MG/KG; THREE DOSES PER CYCLE WITH FIRST THREE ERT INFUSIO
     Route: 065
  4. RITUXIMAB (UNKNOWN) [Suspect]
     Active Substance: RITUXIMAB
     Dosage: FOUR DOSES OF WEEKLY RITUXIMAB
     Route: 042
  5. RITUXIMAB (UNKNOWN) [Suspect]
     Active Substance: RITUXIMAB
     Dosage: FOUR DOSES OF WEEKLY RITUXIMAB
     Route: 042
  6. METHOTREXATE. [Suspect]
     Active Substance: METHOTREXATE
     Dosage: THREE CYCLES OF LOW-DOSE METHOTREXATE (0.4 MG/KG; THREE DOSES PER CYCLE WITH FIRST THREE ERT INFUSIO
     Route: 065
  7. RITUXIMAB (UNKNOWN) [Suspect]
     Active Substance: RITUXIMAB
     Indication: GLYCOGEN STORAGE DISEASE TYPE II
     Dosage: FOUR DOSES OF WEEKLY RITUXIMAB
     Route: 042
  8. IMMUNOGLOBULIN I.V [Suspect]
     Active Substance: HUMAN IMMUNOGLOBULIN G
     Indication: GLYCOGEN STORAGE DISEASE TYPE II
     Dosage: 500 MG/KG, MONTHLY (FIRST DOSE WAS ADMINISTERED 24-48 HRS AFTER THE FIRST DOSE OF RITUXIMAB)
     Route: 042
  9. ALGLUCOSIDASE ALFA RECOMBINANT [Suspect]
     Active Substance: ALGLUCOSIDASE ALFA
     Indication: GLYCOGEN STORAGE DISEASE TYPE II
     Dosage: 20 MG/KG EVERY OTHER WEEK (EOW); INITIATED ON OR SUBSEQUENTLY RECEIVED ERT AT A HIGHER DOSE THAN THE

REACTIONS (3)
  - Drug effective for unapproved indication [Unknown]
  - Product use issue [Unknown]
  - Off label use [Unknown]
